FAERS Safety Report 5492973-3 (Version None)
Quarter: 2007Q4

REPORT INFORMATION
  Report Type: 
  Country: None (occurrence: None)
  Receive Date: 20071023
  Receipt Date: 20071015
  Transmission Date: 20080405
  Serious: Yes (Hospitalization)
  Sender: FDA-Public Use
  Company Number: JP-AMGEN-US248303

PATIENT
  Sex: Male

DRUGS (14)
  1. ARANESP [Suspect]
     Indication: DIALYSIS
     Route: 042
     Dates: start: 20070710, end: 20070731
  2. EPOETIN ALFA [Suspect]
     Indication: ANAEMIA
     Dates: start: 20070122, end: 20070710
  3. ASPIRIN [Concomitant]
     Dates: end: 20070801
  4. BISOPROLOL FUMARATE [Concomitant]
     Dates: end: 20070801
  5. AMLODIPINE BESYLATE [Concomitant]
     Dates: start: 20070129, end: 20070801
  6. ROSUVASTATIN CALCIUM [Concomitant]
     Dates: end: 20070801
  7. NIFEDIPINE [Concomitant]
     Dates: start: 20070305, end: 20070801
  8. ISOSORBIDE DINITRATE [Concomitant]
     Dates: end: 20070801
  9. MITIGLINIDE CALCIUM HYDRATE [Concomitant]
     Dates: end: 20070801
  10. CALCIUM CARBONATE [Concomitant]
     Dates: start: 20070309, end: 20070801
  11. LOSARTAN POTASSIUM [Concomitant]
     Dates: start: 20070409, end: 20070801
  12. TICLOPIDINE HYDROCHLORIDE [Concomitant]
     Dates: end: 20070801
  13. LAFUTIDINE [Concomitant]
     Dates: end: 20070801
  14. ALFACALCIDOL [Concomitant]
     Dates: start: 20070424, end: 20070801

REACTIONS (1)
  - CEREBRAL INFARCTION [None]
